FAERS Safety Report 5759689-7 (Version None)
Quarter: 2008Q2

REPORT INFORMATION
  Report Type: 
  Country: None (occurrence: None)
  Receive Date: 20080605
  Receipt Date: 20080527
  Transmission Date: 20081010
  Serious: Yes (Other)
  Sender: FDA-Public Use
  Company Number: A0721385A

PATIENT
  Age: 66 Year
  Sex: Female

DRUGS (11)
  1. ADVAIR DISKUS 100/50 [Suspect]
     Indication: ASTHMA
     Dosage: 1PUFF TWICE PER DAY
     Route: 055
     Dates: start: 20080307, end: 20080321
  2. BENZONATATE [Concomitant]
  3. AMBROTOSE [Concomitant]
     Dosage: .25TBS PER DAY
  4. MULTI-VITAMIN [Concomitant]
  5. FISH OIL [Concomitant]
     Dosage: 1000MG PER DAY
  6. COENZYME Q10 [Concomitant]
     Dosage: 100MG PER DAY
  7. CALCIUM PLUS D [Concomitant]
     Dosage: 1200MG PER DAY
  8. BENADRYL [Concomitant]
  9. HORSE CHESTNUT SEED EXTRACT [Concomitant]
     Indication: ILL-DEFINED DISORDER
  10. TRIAMCINOLONE [Concomitant]
  11. LEVAQUIN [Concomitant]

REACTIONS (5)
  - AGEUSIA [None]
  - ANOSMIA [None]
  - COUGH [None]
  - HEART RATE INCREASED [None]
  - PNEUMONIA [None]
